FAERS Safety Report 5707797-9 (Version None)
Quarter: 2008Q2

REPORT INFORMATION
  Report Type: 
  Country: None (occurrence: None)
  Receive Date: 20080417
  Receipt Date: 20080414
  Transmission Date: 20081010
  Serious: Yes (Death, Other)
  Sender: FDA-Public Use
  Company Number: US-BRISTOL-MYERS SQUIBB COMPANY-14152896

PATIENT
  Age: 58 Year
  Sex: Female

DRUGS (2)
  1. WARFARIN SODIUM [Suspect]
     Indication: CARDIOMEGALY
  2. WARFARIN SODIUM [Suspect]
     Indication: AORTIC CALCIFICATION

REACTIONS (5)
  - ATRIOVENTRICULAR BLOCK [None]
  - HAEMATOMA [None]
  - RENAL TUBULAR NECROSIS [None]
  - SHOCK [None]
  - VENTRICULAR FIBRILLATION [None]
